FAERS Safety Report 5832339-7 (Version None)
Quarter: 2008Q3

REPORT INFORMATION
  Report Type: 
  Country: None (occurrence: None)
  Receive Date: 20080804
  Receipt Date: 20080721
  Transmission Date: 20090109
  Serious: Yes (Hospitalization)
  Sender: FDA-Public Use
  Company Number: B0531420A

PATIENT
  Age: 54 Year
  Sex: Female

DRUGS (4)
  1. LAMIVUDINE [Suspect]
     Dosage: 150MG TWICE PER DAY
     Route: 065
     Dates: start: 20060101
  2. STAVUDINE [Suspect]
     Dosage: 40MG TWICE PER DAY
     Route: 065
     Dates: start: 20060101
  3. EFAVIRENZ [Suspect]
     Dosage: 600MG AT NIGHT
     Route: 065
     Dates: start: 20060101
  4. CO-TRIMOXAZOLE [Concomitant]
     Dosage: 960MG PER DAY
     Route: 065
     Dates: start: 20060101

REACTIONS (5)
  - BREAST MASS [None]
  - CHEST WALL MASS [None]
  - CRYPTOCOCCOSIS [None]
  - IMMUNE RECONSTITUTION SYNDROME [None]
  - PEAU D'ORANGE [None]
